FAERS Safety Report 6171665-1 (Version None)
Quarter: 2009Q2

REPORT INFORMATION
  Report Type: 
  Country: None (occurrence: None)
  Receive Date: 20090428
  Receipt Date: 20090428
  Transmission Date: 20091009
  Serious: Yes (Life-Threatening, Hospitalization)
  Sender: FDA-Public Use
  Company Number: None

PATIENT
  Age: 56 Year
  Sex: Male
  Weight: 68.0396 kg

DRUGS (1)
  1. FLEET PHOSPHO-SODA FLEET [Suspect]
     Indication: BOWEL PREPARATION
     Dosage: 2 DOSES  10 HOURS   APART  PO
     Route: 048
     Dates: start: 20030120, end: 20030121

REACTIONS (4)
  - JOINT SWELLING [None]
  - MALAISE [None]
  - OEDEMA PERIPHERAL [None]
  - RENAL FAILURE ACUTE [None]
